FAERS Safety Report 7299585-X (Version None)
Quarter: 2010Q4

REPORT INFORMATION
  Report Type: 
  Country: None (occurrence: None)
  Receive Date: 20101223
  Receipt Date: 20100817
  Transmission Date: 20110411
  Serious: Yes (Hospitalization)
  Sender: FDA-Public Use
  Company Number: 311412

PATIENT
  Age: 68 Year
  Sex: Female
  Weight: 58 kg

DRUGS (1)
  1. LEVEMIR [Suspect]
     Indication: TYPE 1 DIABETES MELLITUS
     Dosage: 10 U AM, 10 U PM, SUBCUTANEOUS
     Route: 058
     Dates: start: 20100526

REACTIONS (3)
  - BLOOD GLUCOSE INCREASED [None]
  - DEVICE MALFUNCTION [None]
  - HYPOGLYCAEMIC UNCONSCIOUSNESS [None]
